FAERS Safety Report 10301412 (Version 1)
Quarter: 2014Q3

REPORT INFORMATION
  Report Type: Spontaneous
  Country: DE (occurrence: DE)
  Receive Date: 20140714
  Receipt Date: 20140714
  Transmission Date: 20150326
  Serious: Yes (Other)
  Sender: FDA-Public Use
  Company Number: DE-JNJFOC-20140705593

PATIENT
  Age: 30 Year
  Sex: Female
  Weight: 51 kg

DRUGS (7)
  1. REMICADE [Suspect]
     Active Substance: INFLIXIMAB
     Indication: CROHN^S DISEASE
     Dosage: 1ST TRIMESTER, 0-19 GESTATIONAL WEEK
     Route: 042
  2. PALLADON [Suspect]
     Active Substance: HYDROMORPHONE
     Indication: PAIN
     Dosage: 1 TRIMESTER, 0-19 GESTATIONAL WEEK
     Route: 048
  3. ADALIMUMAB [Suspect]
     Active Substance: ADALIMUMAB
     Indication: CROHN^S DISEASE
     Dosage: 1 TRIMESTER; 0-19 GESTATIONAL WEEK
     Route: 058
  4. METHOTREXATE [Suspect]
     Active Substance: METHOTREXATE
     Indication: CROHN^S DISEASE
     Dosage: EXPOSURE 1ST TRIMESTER, 0-19 GESTATIONAL WEEK
     Route: 048
  5. PETHIDINE [Suspect]
     Active Substance: MEPERIDINE
     Indication: PAIN
     Dosage: 1 TRIMESTER, 0-19 GESTATIONAL WEEK
     Route: 048
  6. CELESTAN [Suspect]
     Active Substance: BETAMETHASONE
     Indication: MATERNAL THERAPY TO ENHANCE FOETAL LUNG MATURITY
     Dosage: 3 TRIMESTER, 29.4-29.5 GESTATIONAL WEEK
     Route: 030
     Dates: start: 20130114, end: 20130115
  7. VENLAFAXINE [Suspect]
     Active Substance: VENLAFAXINE HYDROCHLORIDE
     Indication: DEPRESSION
     Dosage: 1 TRIMESTER, 0-19 GESTATIONAL WEEK
     Route: 048

REACTIONS (4)
  - Premature labour [Recovered/Resolved]
  - Pre-eclampsia [Recovered/Resolved]
  - Exposure during pregnancy [Recovered/Resolved]
  - Placental insufficiency [Recovered/Resolved]
